FAERS Safety Report 16870281 (Version 1)
Quarter: 2019Q3

REPORT INFORMATION
  Report Type: Report from Study
  Country: RO (occurrence: RO)
  Receive Date: 20190930
  Receipt Date: 20190930
  Transmission Date: 20191005
  Serious: Yes (Death, Life-Threatening, Hospitalization, Other)
  Sender: FDA-Public Use
  Company Number: RO-GILEAD-2019-0430915

PATIENT
  Age: 66 Year
  Sex: Female

DRUGS (2)
  1. LEDIPASVIR/SOFOSBUVIR [Suspect]
     Active Substance: LEDIPASVIR\SOFOSBUVIR
     Indication: HEPATITIS C
     Dosage: 1 DOSAGE FORM, QD
     Route: 048
     Dates: start: 20181215, end: 20190531
  2. LEDIPASVIR/SOFOSBUVIR [Suspect]
     Active Substance: LEDIPASVIR\SOFOSBUVIR
     Indication: HEPATIC CIRRHOSIS

REACTIONS (10)
  - Blood pressure increased [Unknown]
  - Splenomegaly [Unknown]
  - Hyponatraemia [Unknown]
  - Cardio-respiratory arrest [Fatal]
  - Peritonitis bacterial [Unknown]
  - Heart rate increased [Unknown]
  - Hepatic encephalopathy [Unknown]
  - Ascites [Unknown]
  - Ill-defined disorder [Unknown]
  - Metabolic acidosis [Unknown]

NARRATIVE: CASE EVENT DATE: 201907
